FAERS Safety Report 6037845-0 (Version None)
Quarter: 2009Q1

REPORT INFORMATION
  Report Type: 
  Country: None (occurrence: None)
  Receive Date: 20090115
  Receipt Date: 20090109
  Transmission Date: 20090719
  Serious: Yes (Hospitalization)
  Sender: FDA-Public Use
  Company Number: JP-SP-2008-01032

PATIENT
  Age: 67 Year
  Sex: Female

DRUGS (1)
  1. BCG  THERAPEUTICS [Suspect]
     Indication: BLADDER CANCER
     Route: 043
     Dates: start: 20070109, end: 20070302

REACTIONS (1)
  - REITER'S SYNDROME [None]
